FAERS Safety Report 15520090 (Version 1)
Quarter: 2018Q4

REPORT INFORMATION
  Report Type: Report from Study
  Country: US (occurrence: US)
  Receive Date: 20181017
  Receipt Date: 20181017
  Transmission Date: 20190205
  Serious: No
  Sender: FDA-Public Use
  Company Number: US-AMGEN-USASL2018101543

PATIENT
  Age: 63 Year
  Sex: Female
  Weight: 74.38 kg

DRUGS (3)
  1. REPATHA [Suspect]
     Active Substance: EVOLOCUMAB
     Indication: BLOOD CHOLESTEROL ABNORMAL
  2. REPATHA [Suspect]
     Active Substance: EVOLOCUMAB
     Indication: BLOOD CHOLESTEROL INCREASED
     Dosage: 140 MG, Q2WK
     Route: 058
  3. REPATHA [Suspect]
     Active Substance: EVOLOCUMAB
     Indication: HYPERLIPIDAEMIA
     Dosage: 140 MG, Q2WK
     Route: 058
     Dates: start: 20180711

REACTIONS (9)
  - Tachycardia [Not Recovered/Not Resolved]
  - Drug hypersensitivity [Unknown]
  - Colitis [Recovering/Resolving]
  - Gastrointestinal infection [Not Recovered/Not Resolved]
  - Sinus headache [Not Recovered/Not Resolved]
  - Gastrooesophageal reflux disease [Not Recovered/Not Resolved]
  - Tooth disorder [Not Recovered/Not Resolved]
  - Injection site erythema [Recovered/Resolved]
  - Injection site pain [Unknown]

NARRATIVE: CASE EVENT DATE: 2018
